FAERS Safety Report 10651993 (Version 2)
Quarter: 2014Q4

REPORT INFORMATION
  Report Type: Spontaneous
  Country: US (occurrence: US)
  Receive Date: 20141215
  Receipt Date: 20141231
  Transmission Date: 20150529
  Serious: No
  Sender: FDA-Public Use
  Company Number: US-PFIZER INC-2014341922

PATIENT
  Age: 62 Year
  Sex: Female
  Weight: 72 kg

DRUGS (4)
  1. ZOCOR [Suspect]
     Active Substance: SIMVASTATIN
     Dosage: UNK
  2. VASOTEC [Concomitant]
     Active Substance: ENALAPRIL MALEATE
     Indication: HYPERTENSION
     Dosage: 2.5 MG, DAILY
     Route: 048
  3. ATORVASTATIN CALCIUM. [Suspect]
     Active Substance: ATORVASTATIN CALCIUM
     Indication: BLOOD CHOLESTEROL INCREASED
     Dosage: 10 MG, DAILY
     Route: 048
  4. ATORVASTATIN CALCIUM. [Suspect]
     Active Substance: ATORVASTATIN CALCIUM
     Dosage: UNK
     Route: 048
     Dates: start: 1990

REACTIONS (1)
  - Muscle spasms [Recovered/Resolved]
